FAERS Safety Report 17049144 (Version 4)
Quarter: 2020Q3

REPORT INFORMATION
  Report Type: Report from Study
  Country: DE (occurrence: DE)
  Receive Date: 20191119
  Receipt Date: 20200821
  Transmission Date: 20201102
  Serious: Yes (Death, Life-Threatening)
  Sender: FDA-Public Use
  Company Number: NVSC2019DE035402

PATIENT
  Age: 49 Year
  Sex: Male
  Weight: 60.3 kg

DRUGS (3)
  1. CGP 41251 / PKC 412A [Suspect]
     Active Substance: MIDOSTAURIN
     Indication: ACUTE MYELOID LEUKAEMIA
     Dosage: 100 MG, QD
     Route: 048
     Dates: start: 20170523, end: 20170710
  2. DAUNORUBICIN [Suspect]
     Active Substance: DAUNORUBICIN
     Indication: ACUTE MYELOID LEUKAEMIA
     Dosage: 60 MG/M2 (111 MG ABS)
     Route: 042
     Dates: start: 20170516, end: 20170518
  3. CYTARABINE. [Suspect]
     Active Substance: CYTARABINE
     Indication: ACUTE MYELOID LEUKAEMIA
     Dosage: 200 MG/M2 (370MG ABS)
     Route: 042
     Dates: start: 20170516, end: 20170522

REACTIONS (1)
  - Septic shock [Fatal]

NARRATIVE: CASE EVENT DATE: 20170720
